FAERS Safety Report 5694210-3 (Version None)
Quarter: 2008Q2

REPORT INFORMATION
  Report Type: 
  Country: None (occurrence: None)
  Receive Date: 20080402
  Receipt Date: 20080319
  Transmission Date: 20081010
  Serious: Yes (Other)
  Sender: FDA-Public Use
  Company Number: E2090-00412-SPO-JP

PATIENT
  Age: 11 Year
  Sex: Male

DRUGS (8)
  1. ZONISAMIDE [Suspect]
     Indication: CONVULSION
     Dosage: ORAL
     Route: 048
  2. VALPROATE SODIUM [Suspect]
     Dosage: ORAL, ORAL
     Route: 048
  3. PHENOBARBITAL TAB [Suspect]
  4. CLONAZEPAM [Suspect]
     Dosage: ORAL
     Route: 048
  5. MIDAZOLAM HCL [Concomitant]
  6. PHENYTOIN [Concomitant]
  7. ACYCLOVIR [Concomitant]
  8. RISPERDAL [Concomitant]

REACTIONS (9)
  - ALANINE AMINOTRANSFERASE INCREASED [None]
  - DERMATITIS EXFOLIATIVE [None]
  - DRUG RASH WITH EOSINOPHILIA AND SYSTEMIC SYMPTOMS [None]
  - ENCEPHALITIS [None]
  - ENCEPHALOPATHY [None]
  - HEPATIC FUNCTION ABNORMAL [None]
  - HUMAN HERPESVIRUS 6 INFECTION [None]
  - LOSS OF CONSCIOUSNESS [None]
  - PYREXIA [None]
